FAERS Safety Report 12472892 (Version 1)
Quarter: 2016Q2

REPORT INFORMATION
  Report Type: Spontaneous
  Country: US (occurrence: US)
  Receive Date: 20160616
  Receipt Date: 20160616
  Transmission Date: 20160815
  Serious: No
  Sender: FDA-Public Use
  Company Number: US-JAZZ-2015-US-020029

PATIENT
  Sex: Male

DRUGS (18)
  1. IBUPROFEN. [Concomitant]
     Active Substance: IBUPROFEN
  2. XYREM [Suspect]
     Active Substance: SODIUM OXYBATE
     Dosage: DOSAGE ADJUSTMENTS
     Route: 048
  3. NAMENDA [Concomitant]
     Active Substance: MEMANTINE HYDROCHLORIDE
  4. XYREM [Suspect]
     Active Substance: SODIUM OXYBATE
     Indication: NARCOLEPSY
     Dosage: 1.5 G, BID
     Route: 048
     Dates: start: 200211, end: 2002
  5. XYREM [Suspect]
     Active Substance: SODIUM OXYBATE
     Dosage: 4.5 G, BID
     Route: 048
     Dates: start: 201107
  6. MODAFINIL. [Concomitant]
     Active Substance: MODAFINIL
  7. KETOCONAZOLE. [Concomitant]
     Active Substance: KETOCONAZOLE
  8. PREVACID [Concomitant]
     Active Substance: LANSOPRAZOLE
  9. ARICEPT [Concomitant]
     Active Substance: DONEPEZIL HYDROCHLORIDE
  10. FLOVENT HFA [Concomitant]
     Active Substance: FLUTICASONE PROPIONATE
  11. ALLEGRA ALLERGY [Concomitant]
     Active Substance: FEXOFENADINE HYDROCHLORIDE
  12. SERTRALINE HCL [Concomitant]
     Active Substance: SERTRALINE HYDROCHLORIDE
  13. BUPROPION HCL [Concomitant]
     Active Substance: BUPROPION HYDROCHLORIDE
  14. PROAIR HFA [Concomitant]
     Active Substance: ALBUTEROL SULFATE
  15. MECLIZINE HCL [Concomitant]
     Active Substance: MECLIZINE HYDROCHLORIDE
  16. NIFEDIPINE. [Concomitant]
     Active Substance: NIFEDIPINE
  17. MAGNESIUM OXIDE. [Concomitant]
     Active Substance: MAGNESIUM OXIDE
  18. AMBIEN [Concomitant]
     Active Substance: ZOLPIDEM TARTRATE

REACTIONS (2)
  - Drug diversion [Unknown]
  - Intentional product misuse [Unknown]
